FAERS Safety Report 23064266 (Version 1)
Quarter: 2023Q4

REPORT INFORMATION
  Report Type: Spontaneous
  Country: FR (occurrence: FR)
  Receive Date: 20231013
  Receipt Date: 20231013
  Transmission Date: 20240110
  Serious: Yes (Life-Threatening, Hospitalization, Other)
  Sender: FDA-Public Use
  Company Number: FR-PHARMALEX-2023001035

PATIENT
  Age: 72 Year
  Sex: Female

DRUGS (3)
  1. TRAMADOL [Interacting]
     Active Substance: TRAMADOL\TRAMADOL HYDROCHLORIDE
     Indication: Product used for unknown indication
     Dosage: UNK
     Route: 065
  2. BROMAZEPAM [Interacting]
     Active Substance: BROMAZEPAM
     Indication: Product used for unknown indication
     Dosage: UNK
     Route: 065
  3. ZOLPIDEM [Interacting]
     Active Substance: ZOLPIDEM TARTRATE
     Indication: Product used for unknown indication
     Dosage: UNK
     Route: 065

REACTIONS (15)
  - Cerebral microhaemorrhage [Unknown]
  - Cardiac failure [Unknown]
  - Acute hepatic failure [Unknown]
  - Acute kidney injury [Unknown]
  - Pneumonia aspiration [Unknown]
  - Poisoning deliberate [Unknown]
  - Hypoxia [Unknown]
  - Coma [Unknown]
  - Encephalopathy [Unknown]
  - Executive dysfunction [Unknown]
  - Drug interaction [Unknown]
  - Motor dysfunction [Unknown]
  - Extrapyramidal disorder [Unknown]
  - Confusional state [Unknown]
  - Overdose [Unknown]
